FAERS Safety Report 18076311 (Version 2)
Quarter: 2020Q3

REPORT INFORMATION
  Report Type: Spontaneous
  Country: US (occurrence: US)
  Receive Date: 20200727
  Receipt Date: 20200804
  Transmission Date: 20201103
  Serious: Yes (Other)
  Sender: FDA-Public Use
  Company Number: US-009507513-2007USA009619

PATIENT
  Age: 20 Year
  Sex: Female
  Weight: 99.32 kg

DRUGS (4)
  1. NEXPLANON [Suspect]
     Active Substance: ETONOGESTREL
     Indication: CONTRACEPTION
     Dosage: 1 ROD IN LEFT ARM
     Route: 059
     Dates: start: 20200330
  2. VITAMINS (UNSPECIFIED) [Concomitant]
     Active Substance: VITAMINS
     Dosage: UNK
  3. KLONOPIN [Concomitant]
     Active Substance: CLONAZEPAM
     Dosage: UNK
  4. LAMICTAL [Concomitant]
     Active Substance: LAMOTRIGINE
     Dosage: UNK

REACTIONS (3)
  - Implant site pain [Not Recovered/Not Resolved]
  - Device dislocation [Not Recovered/Not Resolved]
  - Complication associated with device [Not Recovered/Not Resolved]

NARRATIVE: CASE EVENT DATE: 2020
